FAERS Safety Report 14509029 (Version 1)
Quarter: 2018Q1

REPORT INFORMATION
  Report Type: Spontaneous
  Country: US (occurrence: US)
  Receive Date: 20180209
  Receipt Date: 20180209
  Transmission Date: 20180509
  Serious: No
  Sender: FDA-Public Use
  Company Number: US-HORIZON-PRE-0049-2018

PATIENT
  Age: 54 Year
  Sex: Female

DRUGS (2)
  1. PREDNISONE. [Suspect]
     Active Substance: PREDNISONE
     Indication: ASTHMA
     Dosage: 60 MG AS NEEDED TAPERED DOWN
  2. RAYOS [Suspect]
     Active Substance: PREDNISONE
     Indication: ASTHMA

REACTIONS (2)
  - Headache [Unknown]
  - Abdominal discomfort [Unknown]
